FAERS Safety Report 5880353-8 (Version None)
Quarter: 2008Q3

REPORT INFORMATION
  Report Type: 
  Country: None (occurrence: None)
  Receive Date: 20080912
  Receipt Date: 20080825
  Transmission Date: 20090109
  Serious: Yes (Other)
  Sender: FDA-Public Use
  Company Number: SE-PFIZER INC-2008075518

PATIENT
  Age: 48 Year
  Sex: Female

DRUGS (3)
  1. DEPO-PROVERA SUSPENSION/INJ [Suspect]
     Dosage: FREQ:LAST INJECTION OF THE FIRST CYCLE
     Dates: start: 20060101, end: 20060101
  2. DEPO-PROVERA SUSPENSION/INJ [Suspect]
  3. LEVONORGESTREL [Suspect]
     Dates: start: 20061201, end: 20071001

REACTIONS (1)
  - BREAST CYST [None]
